FAERS Safety Report 4725859-X (Version None)
Quarter: 2005Q3

REPORT INFORMATION
  Report Type: 
  Country: None (occurrence: None)
  Receive Date: 20050722
  Receipt Date: 20050722
  Transmission Date: 20060218
  Serious: No
  Sender: FDA-Public Use
  Company Number: None

PATIENT
  Sex: Female
  Weight: 57.6068 kg

DRUGS (13)
  1. DEXAMETHASONE [Suspect]
     Dosage: 4MG/ML
  2. PROPOFOL [Suspect]
     Dosage: 200MG/20 ML
  3. LIDOCAINE 2% [Suspect]
  4. ZEMURON [Suspect]
     Dosage: 10MG/ML
  5. GLYCOPYRROLATE [Suspect]
     Dosage: 0.2 MG/ML
  6. MIDAZOLAM HCL [Suspect]
  7. FENTANYL [Suspect]
     Dosage: 100MCG/2ML
  8. CEFAZOLIN [Suspect]
     Dosage: 1GM
  9. BETADINE [Suspect]
  10. BETADINE [Suspect]
  11. MARCAINE HCL W/ EPINEPHRINE [Suspect]
     Dosage: 0.5%
  12. NORMAL SALINE [Suspect]
     Dosage: 5ML
  13. NS IRRIGATION [Suspect]

REACTIONS (2)
  - ERYTHEMA [None]
  - PROCEDURAL COMPLICATION [None]
